FAERS Safety Report 7490709-8 (Version None)
Quarter: 2011Q2

REPORT INFORMATION
  Report Type: 
  Country: None (occurrence: None)
  Receive Date: 20110519
  Receipt Date: 20110510
  Transmission Date: 20111010
  Serious: Yes (Hospitalization)
  Sender: FDA-Public Use
  Company Number: US-ASTRAZENECA-2011SE28468

PATIENT
  Age: 61 Year
  Sex: Male

DRUGS (5)
  1. METOPROLOL TARTRATE [Concomitant]
  2. DIOVAN [Concomitant]
  3. METFORMIN HCL [Concomitant]
  4. NITROGLYCERIN [Concomitant]
  5. CRESTOR [Suspect]
     Route: 048

REACTIONS (4)
  - DIABETES MELLITUS [None]
  - BLOOD CHOLESTEROL INCREASED [None]
  - CATARACT [None]
  - EYE OPERATION [None]
